FAERS Safety Report 18449020 (Version 3)
Quarter: 2020Q4

REPORT INFORMATION
  Report Type: Report from Study
  Country: US (occurrence: US)
  Receive Date: 20201030
  Receipt Date: 20201113
  Transmission Date: 20210114
  Serious: No
  Sender: FDA-Public Use
  Company Number: NVSC2020US291600

PATIENT
  Age: 66 Year
  Sex: Female

DRUGS (1)
  1. ENTRESTO [Suspect]
     Active Substance: SACUBITRIL\VALSARTAN
     Indication: PRODUCT USED FOR UNKNOWN INDICATION
     Dosage: 200 MG, BID (97/103 MG)
     Route: 048
     Dates: start: 202005

REACTIONS (5)
  - Nerve injury [Unknown]
  - Exercise tolerance decreased [Unknown]
  - Sciatica [Unknown]
  - Back pain [Unknown]
  - Muscle atrophy [Unknown]

NARRATIVE: CASE EVENT DATE: 202006
